FAERS Safety Report 19175574 (Version 1)
Quarter: 2021Q2

REPORT INFORMATION
  Report Type: Spontaneous
  Country: AU (occurrence: AU)
  Receive Date: 20210423
  Receipt Date: 20210423
  Transmission Date: 20210717
  Serious: Yes (Other)
  Sender: FDA-Public Use
  Company Number: AU-TASMAN PHARMA, INC.-2021TSM00022

PATIENT
  Sex: Male
  Weight: 75 kg

DRUGS (21)
  1. SPIRONOLACTONE. [Concomitant]
     Active Substance: SPIRONOLACTONE
     Dosage: 12.5 MG, 1X/DAY IN THE MORNING
  2. DIAZEPAM. [Concomitant]
     Active Substance: DIAZEPAM
     Dosage: 5 MG, 2X/DAY AS NEEDED
  3. CLOZAPINE. [Suspect]
     Active Substance: CLOZAPINE
     Dosage: 12.5 MG
     Dates: start: 20210310, end: 20210316
  4. CLOZAPINE. [Suspect]
     Active Substance: CLOZAPINE
     Dosage: 37.5 MG
     Dates: start: 20210331, end: 20210406
  5. MOVICOL [Concomitant]
     Active Substance: POLYETHYLENE GLYCOL 3350\POTASSIUM CHLORIDE\SODIUM BICARBONATE\SODIUM CHLORIDE
     Dosage: 1 SACHET, 2X/DAY AS NEEDED
     Route: 048
  6. ASPIRIN EC [Concomitant]
     Active Substance: ASPIRIN
     Dosage: 100 MG, 1X/DAY IN THE MORNING (WITH OR AFTER FOOD)
     Route: 048
  7. HYDROXOCOBALAMIN [Concomitant]
     Active Substance: HYDROXOCOBALAMIN
     Dosage: 1000 ?G, EVERY 3 MONTHS
  8. FOLIC ACID. [Concomitant]
     Active Substance: FOLIC ACID
     Dosage: 5 MG, 1X/DAY IN THE MORNING
  9. THIAMINE. [Concomitant]
     Active Substance: THIAMINE
     Dosage: 300 MG, 1X/DAY IN THE MORNING
     Route: 048
  10. CLOZAPINE. [Suspect]
     Active Substance: CLOZAPINE
     Dosage: 37.5 MG
     Dates: start: 20210324, end: 20210330
  11. ATROPINE. [Concomitant]
     Active Substance: ATROPINE
     Dosage: DILUTE 2 DROPS IN 10 ML OF WATER, RINSE AND EXPEL, 3X/DAY AS NEEDED
     Route: 048
  12. CLOZAPINE. [Suspect]
     Active Substance: CLOZAPINE
     Dosage: 25 MG
     Dates: start: 20210317, end: 20210323
  13. COLOXYL SENNA [Concomitant]
     Dosage: 2 TABLETS, 2X/DAY
     Route: 048
  14. MAGNESIUM ASPARTATE [Concomitant]
     Active Substance: MAGNESIUM ASPARTATE
     Dosage: 500 MG, 2X/DAY
     Route: 048
  15. ROSUVASTATIN. [Concomitant]
     Active Substance: ROSUVASTATIN
     Dosage: 40 MG, 1X/DAY IN THE MORNING
     Route: 048
  16. ENTRESTO [Concomitant]
     Active Substance: SACUBITRIL\VALSARTAN
     Dosage: 1 TABLET, 2X/DAY
     Route: 048
  17. SODIUM CHLORIDE. [Concomitant]
     Active Substance: SODIUM CHLORIDE
     Dosage: 1200 MG, 2X/DAY
  18. OLANZAPINE. [Concomitant]
     Active Substance: OLANZAPINE
     Dosage: 2.5 MG, 2X/DAY AS NEEDED
     Route: 048
  19. CLOZAPINE. [Suspect]
     Active Substance: CLOZAPINE
     Dosage: 50 MG
     Dates: start: 20210407, end: 20210409
  20. ABILIFY [Concomitant]
     Active Substance: ARIPIPRAZOLE
     Dosage: 20 MG, 1X/DAY IN THE MORNING
     Route: 048
  21. BISOPROLOL [Concomitant]
     Active Substance: BISOPROLOL
     Dosage: 2.5 MG, 1X/DAY IN THE MORNING

REACTIONS (4)
  - Electrocardiogram abnormal [Not Recovered/Not Resolved]
  - Contraindicated product administered [Not Recovered/Not Resolved]
  - Left atrial dilatation [Not Recovered/Not Resolved]
  - Left ventricular dilatation [Not Recovered/Not Resolved]

NARRATIVE: CASE EVENT DATE: 20210407
